FAERS Safety Report 9158696 (Version 1)
Quarter: 2013Q1

REPORT INFORMATION
  Report Type: Spontaneous
  Country: IT (occurrence: IT)
  Receive Date: 20130312
  Receipt Date: 20130312
  Transmission Date: 20140127
  Serious: Yes (Hospitalization, Other)
  Sender: FDA-Public Use
  Company Number: IT-BRISTOL-MYERS SQUIBB COMPANY-17443300

PATIENT
  Age: 84 Year
  Sex: Male

DRUGS (4)
  1. COUMADIN TABS 5 MG [Suspect]
     Indication: ATRIAL FIBRILLATION
     Dosage: 1DF=1 UNIT
     Route: 048
     Dates: start: 20100101, end: 20130124
  2. PERINDOPRIL [Concomitant]
     Indication: CARDIAC FAILURE
     Dosage: PERINDOPRIL ARGININE
     Route: 048
     Dates: start: 20100101, end: 20130124
  3. BISOPROLOL HEMIFUMARATE [Concomitant]
     Indication: CARDIAC FAILURE
     Route: 048
     Dates: start: 20100101, end: 20130124
  4. TILDIEM [Concomitant]
     Indication: HYPERTENSION
     Dosage: 1DF=1 UNIT?300MG TABS
     Route: 048
     Dates: start: 20100101, end: 20130124

REACTIONS (2)
  - Melaena [Recovering/Resolving]
  - Gastric cancer [Unknown]
